FAERS Safety Report 11267371 (Version 1)
Quarter: 2015Q3

REPORT INFORMATION
  Report Type: Spontaneous
  Country: US (occurrence: US)
  Receive Date: 20150713
  Receipt Date: 20150713
  Transmission Date: 20151125
  Serious: No
  Sender: FDA-Public Use
  Company Number: US-TAKEDA-2013-02782

PATIENT
  Age: 55 Year
  Sex: Female

DRUGS (1)
  1. VELCADE [Suspect]
     Active Substance: BORTEZOMIB
     Indication: PLASMA CELL MYELOMA
     Dosage: 2.3 MG, UNK
     Route: 058
     Dates: start: 201206, end: 20130610

REACTIONS (6)
  - Nausea [Unknown]
  - Fatigue [Unknown]
  - Therapy change [Unknown]
  - Injection site erythema [Unknown]
  - Pain [Unknown]
  - No adverse event [Unknown]

NARRATIVE: CASE EVENT DATE: 20121226
